FAERS Safety Report 9302733 (Version 1)
Quarter: 2013Q2

REPORT INFORMATION
  Report Type: Spontaneous
  Country: BR (occurrence: BR)
  Receive Date: 20130522
  Receipt Date: 20130522
  Transmission Date: 20140414
  Serious: Yes (Other)
  Sender: FDA-Public Use
  Company Number: PHHY2013BR049918

PATIENT
  Sex: Female
  Weight: 86 kg

DRUGS (10)
  1. APRESOLIN [Suspect]
     Indication: HYPERTENSION
     Dosage: 2 TO 3 TABLETS PER DAY
     Route: 048
  2. DIOVAN AMLO FIX [Suspect]
     Indication: HYPERTENSION
     Dosage: 1 DF, QD (320 MG VALS AND 5 MG AMLO) IN THE MORNING
     Route: 048
  3. DIOVAN [Suspect]
     Indication: HYPERTENSION
     Dosage: 320 MG, QD (IN THE MORNING)
     Route: 048
  4. SIMVASTATIN [Suspect]
     Indication: BLOOD CHOLESTEROL ABNORMAL
     Dosage: 1 DF, PER DAY (20 MG)
     Route: 048
  5. ATENOLOL [Suspect]
     Indication: HYPERTENSION
     Dosage: 1 DF, PER DAY (AT NIGHT) (50 MG)
     Route: 048
  6. ATENOLOL [Suspect]
     Dosage: 1 DF (AT NIGHT) (25 MG)
     Route: 048
  7. ATENOLOL [Suspect]
     Dosage: UNK
  8. AMLODIPINE BESYLATE [Suspect]
     Indication: HYPERTENSION
     Dosage: 1 DF, PER DAY (5 MG)
     Route: 048
  9. AMLODIPINE BESYLATE [Suspect]
     Dosage: 2 DF, PER DAY (5 MG)
     Route: 048
  10. BROMAZEPAN [Concomitant]
     Indication: FEELING OF RELAXATION
     Dosage: 1 DF, UNK(AT NIGHT) (3 MG)
     Route: 048

REACTIONS (9)
  - Cartilage injury [Recovered/Resolved]
  - Osteopenia [Not Recovered/Not Resolved]
  - Osteoarthritis [Not Recovered/Not Resolved]
  - Hernia [Recovering/Resolving]
  - Hypertension [Recovered/Resolved]
  - Helicobacter infection [Recovering/Resolving]
  - Heart rate decreased [Recovered/Resolved]
  - Local swelling [Recovering/Resolving]
  - Myalgia [Recovered/Resolved]
